FAERS Safety Report 8223370-5 (Version None)
Quarter: 2012Q1

REPORT INFORMATION
  Report Type: 
  Country: None (occurrence: None)
  Receive Date: 20120313
  Receipt Date: 20120303
  Transmission Date: 20120608
  Serious: No
  Sender: FDA-Public Use
  Company Number: 2012SP012318

PATIENT
  Age: 81 Year
  Sex: Female

DRUGS (2)
  1. SYCREST (ASENAPINE) [Suspect]
     Indication: DEMENTIA ALZHEIMER'S TYPE
     Dosage: 5 MG;QD;SL
     Route: 060
     Dates: start: 20120226, end: 20120228
  2. TRAZODONE HCL [Concomitant]

REACTIONS (7)
  - GAIT DISTURBANCE [None]
  - WRONG TECHNIQUE IN DRUG USAGE PROCESS [None]
  - MUSCLE SPASMS [None]
  - OCULOGYRIC CRISIS [None]
  - HYPOTENSION [None]
  - LOSS OF CONSCIOUSNESS [None]
  - OFF LABEL USE [None]
